FAERS Safety Report 8880960 (Version 1)
Quarter: 2012Q4

REPORT INFORMATION
  Report Type: 
  Country: US (occurrence: US)
  Receive Date: 20121101
  Receipt Date: 20121101
  Transmission Date: 20130627
  Serious: Yes (Other)
  Sender: FDA-Public Use
  Company Number: US-PFIZER INC-2012268633

PATIENT
  Age: 68 Year
  Sex: Female
  Weight: 74.83 kg

DRUGS (5)
  1. LYRICA [Suspect]
     Indication: FIBROMYALGIA
     Dosage: 25 mg, 2x/day
     Route: 048
     Dates: start: 20120328
  2. LYRICA [Suspect]
     Dosage: 25 mg, 2x/day
     Route: 048
     Dates: start: 20121023
  3. METFORMIN [Concomitant]
     Indication: DIABETES
     Dosage: 1000 mg, as needed
  4. GLYBURIDE [Concomitant]
     Indication: DIABETES
     Dosage: UNK
  5. ADDERALL [Concomitant]
     Dosage: UNK

REACTIONS (5)
  - Panic attack [Unknown]
  - Pain in extremity [Unknown]
  - Vision blurred [Not Recovered/Not Resolved]
  - Fatigue [Unknown]
  - Restlessness [Not Recovered/Not Resolved]
